FAERS Safety Report 15275529 (Version 1)
Quarter: 2018Q3

REPORT INFORMATION
  Report Type: Spontaneous
  Country: US (occurrence: US)
  Receive Date: 20180727
  Receipt Date: 20180727
  Transmission Date: 20181010
  Serious: No
  Sender: FDA-Public Use
  Company Number: None

PATIENT
  Sex: Male

DRUGS (3)
  1. VITAMIN D [Concomitant]
     Active Substance: CHOLECALCIFEROL
  2. DIGOXIN. [Concomitant]
     Active Substance: DIGOXIN
  3. PROPRANOLOL [Suspect]
     Active Substance: PROPRANOLOL HYDROCHLORIDE
     Indication: SUPRAVENTRICULAR TACHYCARDIA
     Route: 048
     Dates: start: 20180620, end: 20180620

REACTIONS (7)
  - Therapy change [None]
  - Neonatal tachycardia [None]
  - Supraventricular tachycardia [None]
  - Hypoglycaemia [None]
  - Exposure via breast milk [None]
  - Bradycardia neonatal [None]
  - Maternal drugs affecting foetus [None]

NARRATIVE: CASE EVENT DATE: 20180620
